FAERS Safety Report 25652515 (Version 2)
Quarter: 2025Q3

REPORT INFORMATION
  Report Type: Spontaneous
  Country: ID (occurrence: ID)
  Receive Date: 20250807
  Receipt Date: 20250826
  Transmission Date: 20251020
  Serious: Yes (Other)
  Sender: TEVA
  Company Number: ID-TEVA-VS-3358403

PATIENT
  Age: 57 Year
  Sex: Female

DRUGS (2)
  1. AMLODIPINE [Suspect]
     Active Substance: AMLODIPINE BESYLATE
     Indication: Hypertension
     Route: 065
  2. ISOSORBIDE DINITRATE [Suspect]
     Active Substance: ISOSORBIDE DINITRATE
     Indication: Angina pectoris
     Route: 065

REACTIONS (3)
  - Drug ineffective [Unknown]
  - Treatment noncompliance [Unknown]
  - Headache [Recovering/Resolving]
